FAERS Safety Report 9504634 (Version 1)
Quarter: 2013Q3

REPORT INFORMATION
  Report Type: Spontaneous
  Country: US (occurrence: US)
  Receive Date: 20130906
  Receipt Date: 20130906
  Transmission Date: 20140515
  Serious: No
  Sender: FDA-Public Use
  Company Number: US-PURDUE-USA-2013-0102988

PATIENT
  Age: 90 Year
  Sex: Female

DRUGS (1)
  1. INTERMEZZO [Suspect]
     Indication: INITIAL INSOMNIA
     Dosage: 1.75 MG, UNK
     Route: 060

REACTIONS (2)
  - Initial insomnia [Unknown]
  - Incorrect drug dosage form administered [Unknown]
